FAERS Safety Report 7865179-8 (Version None)
Quarter: 2011Q4

REPORT INFORMATION
  Report Type: 
  Country: None (occurrence: None)
  Receive Date: 20111028
  Receipt Date: 20101027
  Transmission Date: 20120403
  Serious: No
  Sender: FDA-Public Use
  Company Number: US-GLAXOSMITHKLINE-A0889121A

PATIENT
  Age: 52 Year
  Sex: Male

DRUGS (4)
  1. UNSPECIFIED MEDICATION [Concomitant]
     Indication: EPILEPSY
  2. VENTOLIN [Suspect]
     Indication: CHRONIC OBSTRUCTIVE PULMONARY DISEASE
     Route: 055
     Dates: start: 20080101
  3. FLONASE [Suspect]
     Indication: NASAL DRYNESS
     Route: 045
     Dates: start: 20080101
  4. ADVAIR DISKUS 100/50 [Suspect]
     Indication: CHRONIC OBSTRUCTIVE PULMONARY DISEASE
     Dosage: 1PUFF TWICE PER DAY
     Route: 055
     Dates: start: 20080101

REACTIONS (1)
  - DRY MOUTH [None]
